FAERS Safety Report 6212946-2 (Version None)
Quarter: 2009Q2

REPORT INFORMATION
  Report Type: 
  Country: None (occurrence: None)
  Receive Date: 20090603
  Receipt Date: 20090522
  Transmission Date: 20091009
  Serious: Yes (Hospitalization)
  Sender: FDA-Public Use
  Company Number: GB-NOVOPROD-283472

PATIENT
  Sex: Female
  Weight: 72.5 kg

DRUGS (6)
  1. MIXTARD HUMAN 70/30 [Suspect]
     Indication: INSULIN-REQUIRING TYPE 2 DIABETES MELLITUS
     Dosage: 96 IU, QD (72+24)
     Route: 058
     Dates: start: 20031125
  2. LACIDIPINE [Concomitant]
     Indication: BLOOD PRESSURE
     Dosage: 2 MG, UNK
     Dates: start: 20030617
  3. CITALOPRAM HYDROBROMIDE [Concomitant]
     Dosage: 10 MG, QD
  4. NAPROXEN [Concomitant]
     Dosage: 250 MG, TID
  5. BENDROFLUMETHIAZIDE [Concomitant]
     Dosage: 2.5 MG, UNK
  6. METOCLOPRAMIDE [Concomitant]
     Dosage: 10 MG, TID

REACTIONS (2)
  - EYE PAIN [None]
  - ORTHOSTATIC HYPOTENSION [None]
